FAERS Safety Report 6619444-2 (Version None)
Quarter: 2010Q1

REPORT INFORMATION
  Report Type: 
  Country: None (occurrence: None)
  Receive Date: 20100309
  Receipt Date: 20100305
  Transmission Date: 20100710
  Serious: Yes (Hospitalization)
  Sender: FDA-Public Use
  Company Number: US-ASTRAZENECA-2007UW11033

PATIENT
  Age: 34 Year
  Sex: Female
  Weight: 68 kg

DRUGS (4)
  1. SEROQUEL [Suspect]
     Indication: BIPOLAR DISORDER
     Route: 048
     Dates: start: 19990801, end: 20090801
  2. SEROQUEL [Suspect]
     Route: 048
     Dates: start: 19990901, end: 20061101
  3. ZYPREXA [Concomitant]
     Indication: BIPOLAR DISORDER
     Dates: start: 20061101, end: 20061201
  4. LITHOBID [Concomitant]
     Dates: start: 19990101

REACTIONS (5)
  - HYPOTHYROIDISM [None]
  - PNEUMONIA [None]
  - TYPE 1 DIABETES MELLITUS [None]
  - TYPE 2 DIABETES MELLITUS [None]
  - UTERINE DISORDER [None]
